FAERS Safety Report 4505806-6 (Version None)
Quarter: 2004Q4

REPORT INFORMATION
  Report Type: 
  Country: None (occurrence: None)
  Receive Date: 20041119
  Receipt Date: 20041110
  Transmission Date: 20050328
  Serious: Yes (Hospitalization)
  Sender: FDA-Public Use
  Company Number: FR-JNJFOC-20041102747

PATIENT
  Age: 34 Year
  Sex: Female

DRUGS (9)
  1. ZALDIAR [Suspect]
     Route: 049
  2. BIPROFENID [Suspect]
     Route: 049
  3. CIBLOR [Suspect]
     Route: 049
  4. CIBLOR [Suspect]
     Route: 049
  5. ACTISKENAN [Suspect]
     Route: 049
  6. LAMALINE [Suspect]
     Route: 065
  7. LAMALINE [Suspect]
     Route: 065
  8. LAMALINE [Suspect]
     Route: 065
  9. LAMALINE [Suspect]
     Route: 065

REACTIONS (8)
  - ABDOMINAL PAIN UPPER [None]
  - ASTHENIA [None]
  - DRUG INTERACTION [None]
  - FALL [None]
  - FEELING ABNORMAL [None]
  - HUNGER [None]
  - LOSS OF CONSCIOUSNESS [None]
  - MALAISE [None]
